FAERS Safety Report 4955320-9 (Version None)
Quarter: 2006Q1

REPORT INFORMATION
  Report Type: 
  Country: None (occurrence: None)
  Receive Date: 20060322
  Receipt Date: 20060309
  Transmission Date: 20060701
  Serious: Yes (Other)
  Sender: FDA-Public Use
  Company Number: 2005172677

PATIENT
  Age: 49 Year
  Sex: Male
  Weight: 90.7194 kg

DRUGS (9)
  1. VIAGRA [Suspect]
     Indication: ERECTILE DYSFUNCTION
     Dosage: 100 MG,  AS NECESSARY, ORAL
     Route: 048
     Dates: start: 20020101
  2. AMBIEN [Concomitant]
  3. HYDROCODONE [Concomitant]
  4. FLEXERIL [Concomitant]
  5. ASCORBIC ACID [Concomitant]
  6. FISH OIL [Concomitant]
  7. VITAMIN E [Concomitant]
  8. VITAMIN B COMPLEX CAP [Concomitant]
  9. NORCO [Concomitant]

REACTIONS (12)
  - ARTHRALGIA [None]
  - BACK PAIN [None]
  - BLOOD PRESSURE INCREASED [None]
  - DRUG EFFECT DECREASED [None]
  - MUSCLE SPASMS [None]
  - MUSCLE TIGHTNESS [None]
  - PAIN [None]
  - SEXUAL DYSFUNCTION [None]
  - SLEEP DISORDER [None]
  - SPINAL DISORDER [None]
  - TOBACCO ABUSE [None]
  - VISION BLURRED [None]
